FAERS Safety Report 8493320-5 (Version None)
Quarter: 2012Q2

REPORT INFORMATION
  Report Type: 
  Country: None (occurrence: None)
  Receive Date: 20120628
  Receipt Date: 20120613
  Transmission Date: 20120825
  Serious: Yes (Hospitalization)
  Sender: FDA-Public Use
  Company Number: TPA2012A04037

PATIENT
  Age: 52 Year
  Sex: Male

DRUGS (2)
  1. ADENURIC (FEBUXOSTAT) [Suspect]
     Indication: GOUT
     Dosage: 80 MG (80 MG, 1 IN 1 D), ORAL
     Route: 048
     Dates: start: 20110406, end: 20111001
  2. IBUPROFEN [Concomitant]

REACTIONS (2)
  - CARDIAC FAILURE [None]
  - TREATMENT NONCOMPLIANCE [None]
